FAERS Safety Report 12441885 (Version 1)
Quarter: 2016Q2

REPORT INFORMATION
  Report Type: Spontaneous
  Country: US (occurrence: None)
  Receive Date: 20160606
  Receipt Date: 20160606
  Transmission Date: 20160815
  Serious: Yes (Life-Threatening, Hospitalization)
  Sender: FDA-Public Use
  Company Number: None

PATIENT
  Age: 84 Year
  Sex: Male
  Weight: 98 kg

DRUGS (2)
  1. WARFARIN [Suspect]
     Active Substance: WARFARIN
     Dosage: MG
     Route: 048
     Dates: start: 20160519, end: 20160522
  2. FONDAPARINUX [Suspect]
     Active Substance: FONDAPARINUX
     Dosage: ML
     Route: 058
     Dates: start: 20160514, end: 20160522

REACTIONS (3)
  - Gastrointestinal haemorrhage [None]
  - Retroperitoneal haemorrhage [None]
  - Abdominal pain [None]

NARRATIVE: CASE EVENT DATE: 20160522
